FAERS Safety Report 22844542 (Version 2)
Quarter: 2024Q2

REPORT INFORMATION
  Report Type: Report from Study
  Country: US (occurrence: US)
  Receive Date: 20230821
  Receipt Date: 20240626
  Transmission Date: 20240716
  Serious: No
  Sender: FDA-Public Use
  Company Number: US-AGIOS-2308US03447

PATIENT
  Sex: Female

DRUGS (8)
  1. MITAPIVAT [Suspect]
     Active Substance: MITAPIVAT
     Indication: Pyruvate kinase deficiency anaemia
     Dosage: 50 MILLIGRAM, BID
     Route: 048
     Dates: start: 20230803
  2. APPLE CIDER [Concomitant]
     Indication: Product used for unknown indication
     Route: 065
  3. VITA C [ASCORBIC ACID] [Concomitant]
     Indication: Product used for unknown indication
     Dosage: 250 MILLIGRAM, BID
     Route: 065
  4. OMEGA 3 6 9 COMPLEX [Concomitant]
     Indication: Product used for unknown indication
     Dosage: 3 TAB DAILY
     Route: 065
  5. VITAMIN B3 [Concomitant]
     Active Substance: NIACIN
     Indication: Product used for unknown indication
     Dosage: 2000 INTERNATIONAL UNIT, BID
     Route: 065
  6. VITAMINS NOS [Concomitant]
     Active Substance: VITAMINS
     Indication: Product used for unknown indication
     Dosage: GUMMIES 2 DAILY
     Route: 065
  7. ALEGRA [Concomitant]
     Indication: Product used for unknown indication
     Dosage: 1 TAB AT NIGHT
     Route: 065
  8. JUNEL FE 1/20 [Concomitant]
     Active Substance: ETHINYL ESTRADIOL\NORETHINDRONE ACETATE
     Indication: Contraception
     Dosage: 1/20_BIRTH CONTROL DAILY
     Route: 065

REACTIONS (1)
  - Fatigue [Recovered/Resolved]
